FAERS Safety Report 4830860-1 (Version None)
Quarter: 2005Q4

REPORT INFORMATION
  Report Type: 
  Country: None (occurrence: None)
  Receive Date: 20051114
  Receipt Date: 20051107
  Transmission Date: 20060501
  Serious: Yes (Hospitalization)
  Sender: FDA-Public Use
  Company Number: L05-TUR-04797-01

PATIENT
  Age: 56 Year
  Sex: Male

DRUGS (1)
  1. INDOMETHACIN [Suspect]

REACTIONS (2)
  - MULTI-ORGAN FAILURE [None]
  - PANCREATITIS ACUTE [None]
